FAERS Safety Report 7940065-3 (Version None)
Quarter: 2011Q4

REPORT INFORMATION
  Report Type: 
  Country: None (occurrence: None)
  Receive Date: 20111125
  Receipt Date: 20111114
  Transmission Date: 20120403
  Serious: Yes (Other)
  Sender: FDA-Public Use
  Company Number: PHHY2011US26575

PATIENT
  Sex: Female

DRUGS (19)
  1. GLUCOSAMINE [Concomitant]
  2. OXYCONTIN [Concomitant]
  3. CLIMARA [Concomitant]
  4. PROMETHAZINE [Concomitant]
  5. XANAX [Concomitant]
  6. CARTIA XT [Concomitant]
  7. FLAXSEED OIL [Concomitant]
  8. VITAMIN D [Concomitant]
  9. FLONASE [Concomitant]
  10. TASIGNA [Suspect]
     Indication: CHRONIC MYELOID LEUKAEMIA
     Dosage: 400 MG, Q12H
     Route: 048
     Dates: start: 20080111
  11. VITAMIN B COMPLEX CAP [Concomitant]
  12. HYALURONIC ACID [Concomitant]
  13. VITAMIN E [Concomitant]
  14. SINGULAIR [Concomitant]
  15. SYNTHROID [Concomitant]
  16. REMERON [Concomitant]
  17. CITRUCEL [Concomitant]
  18. ADVAIR DISKUS 100/50 [Concomitant]
  19. CLARITIN-D [Concomitant]

REACTIONS (7)
  - AMNESIA [None]
  - DECREASED APPETITE [None]
  - OEDEMA PERIPHERAL [None]
  - ATTENTION DEFICIT/HYPERACTIVITY DISORDER [None]
  - WEIGHT DECREASED [None]
  - FLUID RETENTION [None]
  - CONCOMITANT DISEASE AGGRAVATED [None]
